FAERS Safety Report 8694939 (Version 2)
Quarter: 2013Q4

REPORT INFORMATION
  Report Type: Spontaneous
  Country: FR (occurrence: FR)
  Receive Date: 20120731
  Receipt Date: 20131106
  Transmission Date: 20140711
  Serious: Yes (Hospitalization)
  Sender: FDA-Public Use
  Company Number: FR-009507513-1207FRA008680

PATIENT
  Age: 70 Year
  Sex: Female
  Weight: 68 kg

DRUGS (13)
  1. VICTRELIS [Suspect]
     Indication: HEPATITIS C
     Dosage: 800 MG, TID
     Dates: start: 20120514, end: 20120712
  2. PEGASYS [Suspect]
     Indication: HEPATITIS C
     Dosage: 180 MICROGRAM, QW
     Dates: start: 20120416, end: 20120712
  3. COPEGUS [Suspect]
     Indication: HEPATITIS C
     Dosage: 800 MG, QD
     Dates: start: 20120502, end: 20120514
  4. COPEGUS [Suspect]
     Dosage: 600 MG, QD
     Dates: start: 20120515, end: 20120530
  5. COPEGUS [Suspect]
     Dosage: 400 MG, QD
     Dates: start: 20120531, end: 20120712
  6. LYRICA [Concomitant]
     Dosage: 300 MG, QD
  7. RIVOTRIL [Concomitant]
     Dosage: UNK
  8. SEROPLEX [Concomitant]
     Dosage: 10 MG, QD
  9. TRAMADOL HYDROCHLORIDE [Concomitant]
     Dosage: 1 DF, QD
  10. RASILEZ [Concomitant]
     Dosage: 150 MG, QD
  11. LEXOMIL [Concomitant]
     Dosage: 0.25 DF, QD
  12. IMOVANE [Concomitant]
     Dosage: 1 DF, QD
  13. VICTAN [Concomitant]
     Dosage: 0.5 DF, QD

REACTIONS (3)
  - Major depression [Recovered/Resolved]
  - Asthenia [Recovered/Resolved]
  - Cystitis [Not Recovered/Not Resolved]
